FAERS Safety Report 7458703-0 (Version None)
Quarter: 2011Q2

REPORT INFORMATION
  Report Type: 
  Country: None (occurrence: None)
  Receive Date: 20110504
  Receipt Date: 20110429
  Transmission Date: 20111010
  Serious: Yes (Other)
  Sender: FDA-Public Use
  Company Number: CHPA2011US06169

PATIENT
  Age: 84 Year
  Sex: Female
  Weight: 58.503 kg

DRUGS (6)
  1. IRON [Concomitant]
     Route: 048
  2. VICODIN [Concomitant]
     Indication: BACK PAIN
  3. HYDRALAZINE HCL [Concomitant]
     Indication: CARDIAC DISORDER
     Route: 048
  4. CLARITIN [Concomitant]
     Indication: HYPERSENSITIVITY
     Dosage: UNK, DAILY
     Route: 048
     Dates: start: 20110301
  5. VOLTAREN [Suspect]
     Indication: ARTHRITIS
     Dosage: UNK, BID
     Route: 061
     Dates: start: 20110301
  6. VICODIN [Concomitant]
     Indication: PAIN IN EXTREMITY
     Dosage: UNK
     Route: 048
     Dates: start: 20110301

REACTIONS (1)
  - HALLUCINATION [None]
